FAERS Safety Report 12168884 (Version 1)
Quarter: 2016Q1

REPORT INFORMATION
  Report Type: Other
  Country: FR (occurrence: FR)
  Receive Date: 20160310
  Receipt Date: 20160310
  Transmission Date: 20160526
  Serious: Yes (Hospitalization)
  Sender: FDA-Public Use
  Company Number: FR-SYMPLMED PHARMACEUTICALS-2016SYMPLMED000164

PATIENT

DRUGS (3)
  1. ESIDREX [Suspect]
     Active Substance: HYDROCHLOROTHIAZIDE
     Indication: HYPERTENSION
     Dosage: UNK
     Route: 048
     Dates: end: 2015
  2. COVERAM [Suspect]
     Active Substance: AMLODIPINE\PERINDOPRIL
     Indication: HYPERTENSION
     Dosage: UNK
     Route: 048
  3. TEMERIT [Suspect]
     Active Substance: NEBIVOLOL
     Indication: HYPERTENSION
     Dosage: UNK
     Route: 048

REACTIONS (9)
  - Electrocardiogram abnormal [Unknown]
  - Arrhythmia [Recovered/Resolved]
  - Loss of consciousness [Unknown]
  - Sinus node dysfunction [Unknown]
  - Hypokalaemia [Recovered/Resolved]
  - Sinus bradycardia [Unknown]
  - Nausea [Unknown]
  - Bundle branch block right [Unknown]
  - Malaise [Unknown]

NARRATIVE: CASE EVENT DATE: 20151030
